FAERS Safety Report 8565467-6 (Version None)
Quarter: 2012Q3

REPORT INFORMATION
  Report Type: 
  Country: None (occurrence: None)
  Receive Date: 20120803
  Receipt Date: 20120606
  Transmission Date: 20120928
  Serious: Yes (Death, Other)
  Sender: FDA-Public Use
  Company Number: FR-ROCHE-1095794

PATIENT
  Sex: Female

DRUGS (4)
  1. AVASTIN [Suspect]
     Indication: COLON CANCER
     Dosage: THIRD LINE
     Dates: start: 20090619, end: 20090703
  2. LEUCOVORIN CALCIUM [Concomitant]
     Dates: start: 20090619, end: 20090703
  3. FLUOROURACIL [Concomitant]
     Dates: start: 20090619, end: 20090703
  4. OXALIPLATIN [Concomitant]
     Dates: start: 20090619, end: 20090703

REACTIONS (2)
  - GENERAL PHYSICAL HEALTH DETERIORATION [None]
  - DISEASE PROGRESSION [None]
